FAERS Safety Report 9979376 (Version 1)
Quarter: 2014Q1

REPORT INFORMATION
  Report Type: Report from Study
  Country: US (occurrence: US)
  Receive Date: 20140306
  Receipt Date: 20140306
  Transmission Date: 20141002
  Serious: No
  Sender: FDA-Public Use
  Company Number: US-ABBVIE-13P-163-1170946-00

PATIENT
  Age: 36 Year
  Sex: Female

DRUGS (5)
  1. HUMIRA [Suspect]
     Indication: CROHN^S DISEASE
     Dates: start: 201306
  2. AZATHIOPRINE [Concomitant]
     Indication: CROHN^S DISEASE
  3. ADVAIR [Concomitant]
     Indication: ASTHMA
     Dosage: 250/50 ONE PUFF
  4. ZYRTEC [Concomitant]
     Indication: HYPERSENSITIVITY
  5. ALLERGY SHOTS [Concomitant]
     Indication: HYPERSENSITIVITY
     Dosage: DONE AT MDO WEEKLY

REACTIONS (2)
  - Drug dose omission [Unknown]
  - Product quality issue [Unknown]
